FAERS Safety Report 8249010-7 (Version None)
Quarter: 2012Q2

REPORT INFORMATION
  Report Type: 
  Country: None (occurrence: None)
  Receive Date: 20120402
  Receipt Date: 20120321
  Transmission Date: 20120825
  Serious: Yes (Hospitalization)
  Sender: FDA-Public Use
  Company Number: US-BIOGENIDEC-2012BI010176

PATIENT
  Sex: Female

DRUGS (8)
  1. PSYCHOTROPIC MEDICATIONS (NOS) [Concomitant]
     Indication: BIPOLAR DISORDER
  2. PSYCHOTROPIC MEDICATIONS (NOS) [Concomitant]
     Indication: POST-TRAUMATIC STRESS DISORDER
  3. CELEXA [Concomitant]
     Indication: MAJOR DEPRESSION
  4. PSYCHOTROPIC MEDICATIONS (NOS) [Concomitant]
     Indication: ANXIETY
  5. PSYCHOTROPIC MEDICATIONS (NOS) [Concomitant]
     Indication: MAJOR DEPRESSION
  6. PSYCHOTROPIC MEDICATIONS (NOS) [Concomitant]
     Indication: MENTAL DISORDER
  7. XANAX [Concomitant]
     Indication: ANXIETY
  8. AVONEX [Suspect]
     Indication: MULTIPLE SCLEROSIS
     Route: 030
     Dates: start: 20110101, end: 20111201

REACTIONS (12)
  - FATIGUE [None]
  - MENTAL DISORDER [None]
  - CARPAL TUNNEL SYNDROME [None]
  - AMNESIA [None]
  - ANXIETY [None]
  - SPINAL DISORDER [None]
  - COORDINATION ABNORMAL [None]
  - DISTURBANCE IN ATTENTION [None]
  - AFFECT LABILITY [None]
  - NERVE COMPRESSION [None]
  - MULTIPLE SCLEROSIS RELAPSE [None]
  - DYSARTHRIA [None]
